FAERS Safety Report 6902889-0 (Version None)
Quarter: 2010Q3

REPORT INFORMATION
  Report Type: 
  Country: None (occurrence: None)
  Receive Date: 20100803
  Receipt Date: 20080715
  Transmission Date: 20110219
  Serious: No
  Sender: FDA-Public Use
  Company Number: US-PFIZER INC-2008059548

PATIENT
  Sex: Female
  Weight: 81.8 kg

DRUGS (4)
  1. LYRICA [Suspect]
     Indication: FIBROMYALGIA
     Dates: start: 20080714, end: 20080715
  2. NORCO [Concomitant]
  3. XANAX [Concomitant]
  4. CELEXA [Concomitant]

REACTIONS (2)
  - INSOMNIA [None]
  - PARAESTHESIA [None]
